FAERS Safety Report 10172122 (Version 1)
Quarter: 2014Q2

REPORT INFORMATION
  Report Type: Spontaneous
  Country: NO (occurrence: NO)
  Receive Date: 20140515
  Receipt Date: 20140515
  Transmission Date: 20141212
  Serious: Yes (Disabling)
  Sender: FDA-Public Use
  Company Number: NO-MERCK-1405NOR005632

PATIENT
  Sex: Male
  Weight: 98 kg

DRUGS (4)
  1. EZETROL [Suspect]
     Indication: BLOOD CHOLESTEROL INCREASED
     Dosage: 10 MG, QD, AS REPLACEMENT FOR OTHER CHOLESTEROL-LOWERING MEDICATION
     Route: 048
     Dates: start: 2005
  2. COZAAR [Concomitant]
     Indication: HYPERTENSION
     Dosage: HIGH BLOOD PRESSURE, HIGH CHOLESTEROL
     Route: 048
     Dates: start: 1997
  3. ALBYL-E [Concomitant]
     Indication: THROMBOSIS PROPHYLAXIS
     Dosage: BLOOD THINNING/HIGH BLOOD PRESSURE
     Dates: start: 1998
  4. SAROTEX [Suspect]
     Indication: PAIN
     Dosage: 20 MG, QD
     Dates: start: 2010

REACTIONS (3)
  - Apathy [Not Recovered/Not Resolved]
  - Fatigue [Not Recovered/Not Resolved]
  - Myalgia [Not Recovered/Not Resolved]
